FAERS Safety Report 5568928-7 (Version None)
Quarter: 2007Q4

REPORT INFORMATION
  Report Type: 
  Country: None (occurrence: None)
  Receive Date: 20071220
  Receipt Date: 20070420
  Transmission Date: 20080405
  Serious: No
  Sender: FDA-Public Use
  Company Number: A0644354A

PATIENT
  Age: 76 Year
  Sex: Male

DRUGS (10)
  1. AVODART [Suspect]
     Indication: BENIGN PROSTATIC HYPERPLASIA
     Dosage: .5MG PER DAY
     Route: 048
     Dates: start: 20070130, end: 20070301
  2. ASPIRIN [Concomitant]
  3. PREDNISONE [Concomitant]
  4. METHOTREXATE [Concomitant]
  5. CARDURA [Concomitant]
  6. GLUCOSAMINE CHONDRITIN [Concomitant]
  7. CENTRUM [Concomitant]
  8. CALCIUM + VIT D [Concomitant]
  9. TRAVATAN [Concomitant]
     Route: 047
  10. TIMOPTIC [Concomitant]
     Route: 047

REACTIONS (2)
  - INTRAOCULAR PRESSURE INCREASED [None]
  - LIBIDO DECREASED [None]
